FAERS Safety Report 7764614-3 (Version None)
Quarter: 2011Q3

REPORT INFORMATION
  Report Type: 
  Country: None (occurrence: None)
  Receive Date: 20110921
  Receipt Date: 20110907
  Transmission Date: 20111222
  Serious: Yes (Other)
  Sender: FDA-Public Use
  Company Number: PHHY2011US51719

PATIENT
  Sex: Male

DRUGS (1)
  1. GLEEVEC [Suspect]
     Indication: NEOPLASM MALIGNANT
     Dosage: 400 MG, EVERYDAY
     Route: 048
     Dates: start: 20101217

REACTIONS (5)
  - BALANCE DISORDER [None]
  - CONCOMITANT DISEASE PROGRESSION [None]
  - FATIGUE [None]
  - MALAISE [None]
  - DIPLOPIA [None]
